FAERS Safety Report 11655919 (Version 1)
Quarter: 2015Q4

REPORT INFORMATION
  Report Type: Spontaneous
  Country: FR (occurrence: FR)
  Receive Date: 20151023
  Receipt Date: 20151023
  Transmission Date: 20160304
  Serious: Yes (Hospitalization)
  Sender: FDA-Public Use
  Company Number: FR-IPCA LABORATORIES LIMITED-IPC201510-000691

PATIENT
  Age: 72 Year
  Sex: Male

DRUGS (12)
  1. METFORMIN [Concomitant]
     Active Substance: METFORMIN HYDROCHLORIDE
  2. HYDROCHLOROTHIAZIDE. [Suspect]
     Active Substance: HYDROCHLOROTHIAZIDE
  3. CLOPIDOGREL [Concomitant]
     Active Substance: CLOPIDOGREL BISULFATE
  4. LOXAPINE. [Concomitant]
     Active Substance: LOXAPINE
  5. LIRAGLUTIDE [Suspect]
     Active Substance: LIRAGLUTIDE
     Route: 058
  6. RAMIPRIL. [Suspect]
     Active Substance: RAMIPRIL
  7. AMOXICILLIN. [Concomitant]
     Active Substance: AMOXICILLIN
  8. CLAVULANIC ACID [Concomitant]
     Active Substance: CLAVULANIC ACID
  9. ATENOLOL. [Concomitant]
     Active Substance: ATENOLOL
  10. MAPROTILIN [Concomitant]
     Active Substance: MAPROTILINE
  11. AMLODIPINE [Concomitant]
     Active Substance: AMLODIPINE BESYLATE
  12. ATORVASTATIN [Concomitant]
     Active Substance: ATORVASTATIN

REACTIONS (1)
  - Acute kidney injury [Recovered/Resolved]
